FAERS Safety Report 4313095-0 (Version None)
Quarter: 2004Q1

REPORT INFORMATION
  Report Type: 
  Country: None (occurrence: None)
  Receive Date: 20040304
  Receipt Date: 20040301
  Transmission Date: 20041129
  Serious: Yes (Life-Threatening, Hospitalization)
  Sender: FDA-Public Use
  Company Number: 2004194737US

PATIENT
  Age: 57 Year
  Sex: Female
  Weight: 59.9 kg

DRUGS (13)
  1. CAMPTOSAR [Suspect]
     Indication: SMALL CELL LUNG CANCER STAGE UNSPECIFIED
     Dosage: 60 MG, DAY 1 + 8, CYCLIC, IV
     Route: 042
     Dates: start: 20031108, end: 20040113
  2. CISPLATIN [Suspect]
     Indication: SMALL CELL LUNG CANCER STAGE UNSPECIFIED
     Dosage: 60 MG, DAY 1, CYCLIC, IV
     Route: 042
     Dates: start: 20031108, end: 20040113
  3. RADIATION THERAPY [Concomitant]
  4. MICRONASE [Concomitant]
  5. LIPITOR [Concomitant]
  6. GLUCOPHAGE [Concomitant]
  7. AVANDIA [Concomitant]
  8. ASPIRIN [Concomitant]
  9. PLAVIX [Concomitant]
  10. PREVACID [Concomitant]
  11. ATENOLOL [Concomitant]
  12. GLYCERYL TRINITRATE PATCH [Concomitant]
  13. DURAGESIC [Concomitant]

REACTIONS (7)
  - BLOOD CREATININE INCREASED [None]
  - BLOOD MAGNESIUM DECREASED [None]
  - BLOOD POTASSIUM INCREASED [None]
  - BLOOD PRESSURE IMMEASURABLE [None]
  - DIABETIC HYPERGLYCAEMIC COMA [None]
  - MUSCLE CRAMP [None]
  - NAUSEA [None]
